FAERS Safety Report 5007867-7 (Version None)
Quarter: 2006Q2

REPORT INFORMATION
  Report Type: 
  Country: None (occurrence: None)
  Receive Date: 20060518
  Receipt Date: 20060502
  Transmission Date: 20061013
  Serious: Yes (Hospitalization)
  Sender: FDA-Public Use
  Company Number: DSA_28123_2006

PATIENT
  Age: 61 Year
  Sex: Female

DRUGS (6)
  1. ENALAPRIL MALEATE [Suspect]
     Indication: ESSENTIAL HYPERTENSION
     Dosage: 5 MG Q DAY PO
     Route: 048
     Dates: end: 20060127
  2. PIKASOL FORTE [Suspect]
     Indication: HYPERLIPIDAEMIA
     Dosage: 1 CAP Q DAY PO
     Route: 048
     Dates: start: 20051101, end: 20060127
  3. PIKASOL FORTE [Suspect]
     Indication: HYPERTRIGLYCERIDAEMIA
     Dosage: 1 CAP Q DAY PO
     Route: 048
     Dates: start: 20051101, end: 20060127
  4. NORFLOXACIN [Suspect]
     Indication: URINARY TRACT INFECTION
     Dosage: 200 MG Q DAY PO
     Route: 048
     Dates: start: 20051201, end: 20051201
  5. CIPRAMIL [Concomitant]
  6. STILNOCT [Concomitant]

REACTIONS (5)
  - AUTOIMMUNE HEPATITIS [None]
  - CHROMATURIA [None]
  - EOSINOPHIL COUNT ABNORMAL [None]
  - FATIGUE [None]
  - WEIGHT DECREASED [None]
